FAERS Safety Report 19367072 (Version 1)
Quarter: 2021Q2

REPORT INFORMATION
  Report Type: Report from Study
  Country: ES (occurrence: ES)
  Receive Date: 20210603
  Receipt Date: 20210603
  Transmission Date: 20210717
  Serious: Yes (Hospitalization)
  Sender: FDA-Public Use
  Company Number: ES-TAKEDA-2021TUS034697

PATIENT
  Sex: Female

DRUGS (7)
  1. VEDOLIZUMAB [Suspect]
     Active Substance: VEDOLIZUMAB
     Indication: INFLAMMATORY BOWEL DISEASE
     Dosage: UNK
     Route: 042
     Dates: start: 20191205
  2. OMEPRAZOLE. [Concomitant]
     Active Substance: OMEPRAZOLE
     Dosage: UNK
  3. USTEKINUMAB [Concomitant]
     Active Substance: USTEKINUMAB
     Dosage: UNK
     Dates: start: 20181108, end: 20191113
  4. COBALAMIN [Concomitant]
     Active Substance: COBALAMIN
     Dosage: UNK
  5. USTEKINUMAB [Concomitant]
     Active Substance: USTEKINUMAB
     Dosage: UNK
  6. FOLIC ACID. [Concomitant]
     Active Substance: FOLIC ACID
     Dosage: UNK
  7. METHOTREXATE. [Concomitant]
     Active Substance: METHOTREXATE
     Dosage: UNK

REACTIONS (3)
  - Diarrhoea [Recovered/Resolved]
  - Abdominal pain [Recovered/Resolved]
  - Abdominal operation [Recovered/Resolved]

NARRATIVE: CASE EVENT DATE: 20210519
